FAERS Safety Report 6078020-3 (Version None)
Quarter: 2009Q1

REPORT INFORMATION
  Report Type: 
  Country: None (occurrence: None)
  Receive Date: 20090213
  Receipt Date: 20090209
  Transmission Date: 20090719
  Serious: Yes (Other)
  Sender: FDA-Public Use
  Company Number: US-PFIZER INC-2009167768

PATIENT

DRUGS (1)
  1. DEPO-MEDROL [Suspect]

REACTIONS (8)
  - BLOOD PRESSURE INCREASED [None]
  - DIZZINESS [None]
  - ERYTHEMA [None]
  - MALAISE [None]
  - NAUSEA [None]
  - SWELLING [None]
  - SWELLING FACE [None]
  - URTICARIA [None]
